FAERS Safety Report 5625574-4 (Version None)
Quarter: 2008Q1

REPORT INFORMATION
  Report Type: 
  Country: None (occurrence: None)
  Receive Date: 20080211
  Receipt Date: 20080211
  Transmission Date: 20080703
  Serious: Yes (Other)
  Sender: FDA-Public Use
  Company Number: None

PATIENT
  Age: 35 Year
  Sex: Male
  Weight: 99 kg

DRUGS (1)
  1. CHANTIX [Suspect]
     Indication: SMOKING CESSATION THERAPY
     Dosage: 1 MILLIGRAM TWICE DAILY PO
     Route: 048
     Dates: start: 20070925, end: 20071214

REACTIONS (2)
  - ANAPHYLACTOID REACTION [None]
  - ANGIOEDEMA [None]
